FAERS Safety Report 25928626 (Version 1)
Quarter: 2025Q4

REPORT INFORMATION
  Report Type: Spontaneous
  Country: EU (occurrence: EU)
  Receive Date: 20251016
  Receipt Date: 20251016
  Transmission Date: 20260118
  Serious: Yes (Death, Life-Threatening, Other)
  Sender: AUROBINDO
  Company Number: EU-LRB-01085920

PATIENT
  Age: 92 Year
  Sex: Female
  Weight: 67 kg

DRUGS (2)
  1. NITROFURANTOIN [Suspect]
     Active Substance: NITROFURANTOIN
     Indication: Antibiotic prophylaxis
     Dosage: 50 MILLIGRAM, ONCE A DAY (1X PER DAY)
     Route: 048
     Dates: start: 20250903, end: 20250915
  2. HALOPERIDOL [Concomitant]
     Active Substance: HALOPERIDOL
     Indication: Product used for unknown indication
     Dosage: UNK
     Route: 048

REACTIONS (3)
  - Respiratory failure [Fatal]
  - Pyrexia [Unknown]
  - Chest pain [Unknown]
